FAERS Safety Report 6663420-0 (Version None)
Quarter: 2010Q1

REPORT INFORMATION
  Report Type: 
  Country: None (occurrence: None)
  Receive Date: 20100330
  Receipt Date: 20100330
  Transmission Date: 20100710
  Serious: No
  Sender: FDA-Public Use
  Company Number: None

PATIENT
  Age: 58 Year
  Sex: Male
  Weight: 85.2762 kg

DRUGS (1)
  1. CLONIDINE [Suspect]
     Indication: HYPERTENSION
     Dosage: ONE PATCH APPLY WEEKLY
     Route: 062
     Dates: start: 20091201, end: 20100201

REACTIONS (1)
  - PRODUCT ADHESION ISSUE [None]
